FAERS Safety Report 7785370-9 (Version None)
Quarter: 2011Q3

REPORT INFORMATION
  Report Type: 
  Country: None (occurrence: None)
  Receive Date: 20110929
  Receipt Date: 20110919
  Transmission Date: 20111222
  Serious: Yes (Other)
  Sender: FDA-Public Use
  Company Number: HR-JNJFOC-20110908371

PATIENT
  Sex: Female

DRUGS (9)
  1. RISPERIDONE [Suspect]
     Indication: SCHIZOAFFECTIVE DISORDER
     Route: 030
     Dates: start: 20110322, end: 20110419
  2. RISPERIDONE [Suspect]
     Route: 048
  3. RISPERIDONE [Suspect]
     Indication: BIPOLAR DISORDER
     Route: 048
  4. RISPERIDONE [Suspect]
     Route: 048
  5. RISPERIDONE [Suspect]
     Route: 048
  6. RISPERIDONE [Suspect]
     Indication: BIPOLAR DISORDER
     Route: 030
     Dates: start: 20110322, end: 20110419
  7. DEPAKENE [Suspect]
     Indication: BIPOLAR DISORDER
     Route: 065
     Dates: start: 20110405
  8. RISPERIDONE [Suspect]
     Indication: SCHIZOAFFECTIVE DISORDER
     Route: 048
  9. RISPERIDONE [Suspect]
     Route: 048

REACTIONS (5)
  - HYPERPROLACTINAEMIA [None]
  - OEDEMA [None]
  - HYPERLIPIDAEMIA [None]
  - HEPATIC ENZYME INCREASED [None]
  - WEIGHT INCREASED [None]
